FAERS Safety Report 7971353 (Version 4)
Quarter: 2013Q2

REPORT INFORMATION
  Report Type: Spontaneous
  Country: US (occurrence: US)
  Receive Date: 20110602
  Receipt Date: 20130419
  Transmission Date: 20140414
  Serious: Yes (Hospitalization, Other)
  Sender: FDA-Public Use
  Company Number: US-ASTRAZENECA-2011SE32199

PATIENT
  Age: 66 Year
  Sex: Male

DRUGS (3)
  1. SYMBICORT PMDI [Suspect]
     Indication: CHRONIC OBSTRUCTIVE PULMONARY DISEASE
     Dosage: UNKNOWN
     Route: 055
  2. NEXIUM [Suspect]
     Route: 048
  3. MOBIC [Concomitant]

REACTIONS (11)
  - Liver disorder [Unknown]
  - Pneumonia [Unknown]
  - Dyspnoea [Unknown]
  - Asthma [Unknown]
  - Localised infection [Unknown]
  - Emphysema [Unknown]
  - Bronchitis [Unknown]
  - Wheezing [Unknown]
  - Chronic obstructive pulmonary disease [Unknown]
  - Cough [Unknown]
  - Drug dose omission [Unknown]
